FAERS Safety Report 9129625 (Version 3)
Quarter: 2013Q4

REPORT INFORMATION
  Report Type: Spontaneous
  Country: FR (occurrence: FR)
  Receive Date: 20130125
  Receipt Date: 20131031
  Transmission Date: 20140711
  Serious: Yes (Other)
  Sender: FDA-Public Use
  Company Number: FR-ASTRAZENECA-2013SE03723

PATIENT
  Age: 858 Month
  Sex: Female

DRUGS (8)
  1. CRESTOR [Suspect]
     Route: 048
  2. KIVEXA [Suspect]
     Indication: HIV INFECTION
     Dosage: LONG LASTING TREATMENT
  3. ALDACTONE [Suspect]
     Indication: HYPERTENSION
     Route: 048
  4. LUCENTIS [Suspect]
     Indication: AGE-RELATED MACULAR DEGENERATION
     Dosage: LONG LASTIN TREATMENT
     Route: 031
  5. SUSTIVA [Suspect]
     Indication: HIV INFECTION
     Dosage: LONG LASTIN TREATMENT
     Route: 048
  6. CARTEOL [Suspect]
     Indication: AGE-RELATED MACULAR DEGENERATION
     Route: 047
  7. TRAVATAN [Suspect]
     Route: 047
  8. MONOTILDIEM [Suspect]
     Route: 048

REACTIONS (1)
  - Hypertrophic cardiomyopathy [Not Recovered/Not Resolved]
